FAERS Safety Report 8605891-6 (Version None)
Quarter: 2012Q3

REPORT INFORMATION
  Report Type: 
  Country: None (occurrence: None)
  Receive Date: 20120820
  Receipt Date: 20120809
  Transmission Date: 20120928
  Serious: Yes (Other)
  Sender: FDA-Public Use
  Company Number: FR-VIIV HEALTHCARE LIMITED-B0821678A

PATIENT
  Sex: Female

DRUGS (10)
  1. PREZISTA [Suspect]
     Indication: HIV INFECTION CDC CATEGORY B2
     Route: 048
     Dates: start: 20111220
  2. NORVIR [Concomitant]
     Indication: HIV INFECTION CDC CATEGORY B2
     Route: 048
     Dates: start: 20030101
  3. NEXIUM [Concomitant]
     Dosage: 1UNIT PER DAY
     Route: 048
     Dates: start: 20101005
  4. VIREAD [Concomitant]
     Route: 065
     Dates: start: 20060406, end: 20111220
  5. ABACAVIR SULFATE/LAMIVUDINE [Suspect]
     Indication: HIV INFECTION CDC CATEGORY B2
     Route: 048
     Dates: start: 20111220
  6. LEVOCARNIL [Concomitant]
     Dosage: 1UNIT PER DAY
     Route: 065
     Dates: start: 20101005
  7. VITAMIN D [Concomitant]
     Route: 065
     Dates: start: 20101005
  8. INVIRASE [Concomitant]
     Route: 065
     Dates: start: 20060406, end: 20111220
  9. EZETIMIBE [Concomitant]
     Dosage: 10MG PER DAY
     Route: 048
     Dates: start: 20101005
  10. EPIVIR [Concomitant]
     Dates: start: 20060406, end: 20111220

REACTIONS (3)
  - PARAESTHESIA [None]
  - HYPERAESTHESIA [None]
  - OEDEMA PERIPHERAL [None]
